FAERS Safety Report 17121055 (Version 1)
Quarter: 2019Q4

REPORT INFORMATION
  Report Type: Spontaneous
  Country: AU (occurrence: AU)
  Receive Date: 20191206
  Receipt Date: 20191206
  Transmission Date: 20200122
  Serious: Yes (Other)
  Sender: FDA-Public Use
  Company Number: AU-APOTEX-2019AP025861

PATIENT
  Age: 37 Year
  Sex: Female

DRUGS (1)
  1. AROPAX [Suspect]
     Active Substance: PAROXETINE HYDROCHLORIDE
     Indication: PRODUCT USED FOR UNKNOWN INDICATION
     Dosage: UNK (TAKING FOR ABOUT 20 YEARS)
     Route: 065

REACTIONS (2)
  - Drug withdrawal convulsions [Unknown]
  - Withdrawal syndrome [Unknown]
